FAERS Safety Report 18921260 (Version 1)
Quarter: 2021Q1

REPORT INFORMATION
  Report Type: Spontaneous
  Country: US (occurrence: US)
  Receive Date: 20210219
  Receipt Date: 20210219
  Transmission Date: 20210420
  Serious: No
  Sender: FDA-Public Use
  Company Number: None

PATIENT
  Age: 43 Year
  Sex: Female
  Weight: 117 kg

DRUGS (3)
  1. BAMLANIVIMAB. [Concomitant]
     Active Substance: BAMLANIVIMAB
     Dates: start: 20210219, end: 20210219
  2. BAMLANIVIMAB. [Suspect]
     Active Substance: BAMLANIVIMAB
     Dates: end: 20210219
  3. NORMAL SALINE [Concomitant]
     Active Substance: SODIUM CHLORIDE
     Dates: start: 20210219, end: 20210219

REACTIONS (3)
  - Seizure [None]
  - Infusion related reaction [None]
  - Blood pressure decreased [None]

NARRATIVE: CASE EVENT DATE: 20210219
